FAERS Safety Report 7679651-7 (Version None)
Quarter: 2011Q3

REPORT INFORMATION
  Report Type: 
  Country: None (occurrence: None)
  Receive Date: 20110808
  Receipt Date: 20110724
  Transmission Date: 20111222
  Serious: Yes (Hospitalization)
  Sender: FDA-Public Use
  Company Number: B0736790A

PATIENT
  Age: 39 Year
  Sex: Female

DRUGS (3)
  1. EMTRICITABINE [Concomitant]
  2. ORLISTAT [Suspect]
     Indication: WEIGHT DECREASED
     Dosage: 60 MG / TWICE PER DAY
  3. LOPINAVIR AND RITONAVIR [Suspect]
     Indication: HIV INFECTION
     Dosage: 400 MG / TWICE PER DAY
     Dates: start: 20020201

REACTIONS (3)
  - ENCEPHALITIS [None]
  - DRUG INTERACTION [None]
  - VIRAL LOAD INCREASED [None]
